FAERS Safety Report 18775667 (Version 3)
Quarter: 2021Q1

REPORT INFORMATION
  Report Type: Spontaneous
  Country: DE (occurrence: DE)
  Receive Date: 20210122
  Receipt Date: 20210325
  Transmission Date: 20210419
  Serious: Yes (Hospitalization, Other)
  Sender: FDA-Public Use
  Company Number: DE-STEMLINE THERAPEUTICS, INC.-2021ST000002

PATIENT
  Age: 68 Year
  Sex: Male

DRUGS (1)
  1. ELZONRIS [Suspect]
     Active Substance: TAGRAXOFUSP-ERZS
     Indication: PRODUCT USED FOR UNKNOWN INDICATION
     Dosage: DAY 1 TO DAY 5 OF A 21?DAY CYCLE
     Route: 042
     Dates: start: 20201209, end: 20210202

REACTIONS (3)
  - Capillary leak syndrome [Recovered/Resolved]
  - Off label use [Recovered/Resolved]
  - Disease progression [Recovering/Resolving]

NARRATIVE: CASE EVENT DATE: 20201209
